FAERS Safety Report 11589250 (Version 3)
Quarter: 2015Q4

REPORT INFORMATION
  Report Type: Spontaneous
  Country: JP (occurrence: JP)
  Receive Date: 20151002
  Receipt Date: 20151015
  Transmission Date: 20160304
  Serious: Yes (Life-Threatening, Hospitalization)
  Sender: FDA-Public Use
  Company Number: JP-SA-2015SA108364

PATIENT
  Age: 88 Year
  Sex: Female
  Weight: 55.3 kg

DRUGS (5)
  1. ONEALFA [Concomitant]
     Active Substance: ALFACALCIDOL
     Dates: end: 20150713
  2. PLAVIX [Suspect]
     Active Substance: CLOPIDOGREL BISULFATE
     Route: 048
     Dates: start: 20150513, end: 20150713
  3. AMLODIPINE [Concomitant]
     Active Substance: AMLODIPINE BESYLATE
     Route: 048
     Dates: end: 20150713
  4. NEXIUM [Concomitant]
     Active Substance: ESOMEPRAZOLE MAGNESIUM
     Dates: start: 20150513, end: 20150713
  5. MAGLAX [Concomitant]
     Active Substance: MAGNESIUM OXIDE
     Dates: end: 20150713

REACTIONS (2)
  - Sepsis [Recovered/Resolved]
  - Agranulocytosis [Recovered/Resolved]

NARRATIVE: CASE EVENT DATE: 20150712
